FAERS Safety Report 24819784 (Version 1)
Quarter: 2025Q1

REPORT INFORMATION
  Report Type: Report from Study
  Country: CA (occurrence: CA)
  Receive Date: 20250108
  Receipt Date: 20250108
  Transmission Date: 20250409
  Serious: Yes (Other)
  Sender: LUNDBECK
  Company Number: CA-LUNDBECK-DKLU4008824

PATIENT

DRUGS (4)
  1. VYEPTI [Suspect]
     Active Substance: EPTINEZUMAB-JJMR
     Indication: Migraine
     Dosage: 100 MILLIGRAM
     Route: 041
     Dates: start: 20240418, end: 20240418
  2. VYEPTI [Suspect]
     Active Substance: EPTINEZUMAB-JJMR
     Dosage: 300 MILLIGRAM
     Route: 041
     Dates: start: 20240711
  3. UBRELVY [Concomitant]
     Active Substance: UBROGEPANT
     Indication: Product used for unknown indication
     Dosage: 100 MILLIGRAM
  4. MEMANTINE [Concomitant]
     Active Substance: MEMANTINE
     Indication: Product used for unknown indication
     Dosage: 10 MILLIGRAM

REACTIONS (3)
  - Partial seizures [Unknown]
  - Migraine [Unknown]
  - Urinary tract infection [Recovered/Resolved]
